FAERS Safety Report 17498547 (Version 1)
Quarter: 2020Q1

REPORT INFORMATION
  Report Type: Spontaneous
  Country: US (occurrence: US)
  Receive Date: 20200304
  Receipt Date: 20200304
  Transmission Date: 20200409
  Serious: Yes (Other)
  Sender: FDA-Public Use
  Company Number: US-BIOMARINAP-US-2020-128259

PATIENT
  Age: 5 Year
  Sex: Female
  Weight: 12 kg

DRUGS (1)
  1. VIMIZIM [Suspect]
     Active Substance: ELOSULFASE ALFA
     Indication: MUCOPOLYSACCHARIDOSIS IV
     Dosage: 7 UNK, QW
     Route: 042

REACTIONS (2)
  - Product dose omission [Unknown]
  - Limb operation [Unknown]

NARRATIVE: CASE EVENT DATE: 202002
